FAERS Safety Report 9338128 (Version 1)
Quarter: 2013Q2

REPORT INFORMATION
  Report Type: Spontaneous
  Country: US (occurrence: None)
  Receive Date: 20130605
  Receipt Date: 20130605
  Transmission Date: 20140414
  Serious: Yes (Other)
  Sender: FDA-Public Use
  Company Number: None

PATIENT
  Age: 71 Year
  Sex: Female
  Weight: 55.34 kg

DRUGS (1)
  1. FORTEO [Suspect]

REACTIONS (7)
  - Abdominal pain upper [None]
  - Gastrooesophageal reflux disease [None]
  - Abdominal distension [None]
  - Myalgia [None]
  - Arthralgia [None]
  - Confusional state [None]
  - Tic [None]
